FAERS Safety Report 15106872 (Version 4)
Quarter: 2019Q4

REPORT INFORMATION
  Report Type: Spontaneous
  Country: US (occurrence: US)
  Receive Date: 20180704
  Receipt Date: 20191203
  Transmission Date: 20200122
  Serious: Yes (Other)
  Sender: FDA-Public Use
  Company Number: US-SA-2018SA178233

PATIENT
  Age: 42 Year
  Sex: Female
  Weight: 129.25 kg

DRUGS (13)
  1. ALTACE [Concomitant]
     Active Substance: RAMIPRIL
     Route: 065
     Dates: start: 2010
  2. LIPITOR [Concomitant]
     Active Substance: ATORVASTATIN CALCIUM
     Dosage: UNK, UNK
     Route: 065
     Dates: start: 2003, end: 2005
  3. ADRIAMYCIN [Concomitant]
     Active Substance: DOXORUBICIN HYDROCHLORIDE
     Dosage: UNK UNK, Q3W
     Route: 065
  4. ALTACE [Concomitant]
     Active Substance: RAMIPRIL
     Route: 065
     Dates: start: 2007, end: 2010
  5. NEOSAR [Concomitant]
     Active Substance: CYCLOPHOSPHAMIDE
     Dosage: UNK, UNK, Q3W
     Route: 065
  6. GLIPIZIDE. [Concomitant]
     Active Substance: GLIPIZIDE
     Dosage: UNK, UNK
     Route: 065
     Dates: start: 2003, end: 2006
  7. TAXOTERE [Suspect]
     Active Substance: DOCETAXEL
     Dosage: 150-160 MG Q3W
     Route: 042
     Dates: start: 20110323, end: 20110323
  8. TAXOTERE [Suspect]
     Active Substance: DOCETAXEL
     Indication: INVASIVE DUCTAL BREAST CARCINOMA
     Dosage: 150-160 MG, Q3W
     Route: 042
     Dates: start: 20101210, end: 20101210
  9. GLIPIZIDE. [Concomitant]
     Active Substance: GLIPIZIDE
     Route: 065
     Dates: start: 2010
  10. GLIPIZIDE. [Concomitant]
     Active Substance: GLIPIZIDE
     Route: 065
     Dates: start: 2007, end: 2010
  11. ALTACE [Concomitant]
     Active Substance: RAMIPRIL
     Dosage: UNK, UNK
     Route: 065
     Dates: start: 2003
  12. NEOSAR [Concomitant]
     Active Substance: CYCLOPHOSPHAMIDE
     Indication: INVASIVE DUCTAL BREAST CARCINOMA
     Dosage: UNK, UNK Q3W
     Route: 065
  13. ADRIAMYCIN [Concomitant]
     Active Substance: DOXORUBICIN HYDROCHLORIDE
     Indication: INVASIVE DUCTAL BREAST CARCINOMA
     Dosage: UNK UNK, Q3W
     Route: 065

REACTIONS (2)
  - Alopecia [Recovering/Resolving]
  - Psychological trauma [Unknown]

NARRATIVE: CASE EVENT DATE: 201012
